FAERS Safety Report 14298561 (Version 4)
Quarter: 2018Q3

REPORT INFORMATION
  Report Type: Spontaneous
  Country: US (occurrence: US)
  Receive Date: 20171218
  Receipt Date: 20180702
  Transmission Date: 20181010
  Serious: Yes (Life-Threatening)
  Sender: FDA-Public Use
  Company Number: US-ACTELION-A-US2016-136192

PATIENT
  Age: 62 Year
  Sex: Male

DRUGS (15)
  1. METHOTREXATE. [Concomitant]
     Active Substance: METHOTREXATE
  2. HYDROXYCHLOROQUINE [Concomitant]
     Active Substance: HYDROXYCHLOROQUINE
  3. OMEPRAZOLE. [Concomitant]
     Active Substance: OMEPRAZOLE
  4. FOLIC ACID. [Concomitant]
     Active Substance: FOLIC ACID
  5. PREDNISONE. [Concomitant]
     Active Substance: PREDNISONE
  6. FUROSEMIDE. [Concomitant]
     Active Substance: FUROSEMIDE
  7. GABAPENTIN. [Concomitant]
     Active Substance: GABAPENTIN
  8. OPSUMIT [Suspect]
     Active Substance: MACITENTAN
     Indication: PULMONARY ARTERIAL HYPERTENSION
     Dosage: 10 MG, QD
     Route: 048
     Dates: start: 20160215
  9. TREPROSTINIL DIOLAMIN [Concomitant]
     Active Substance: TREPROSTINIL DIOLAMINE
     Dosage: 3 MG, BID
     Route: 048
     Dates: start: 20160623
  10. TREPROSTINIL DIOLAMIN [Concomitant]
     Active Substance: TREPROSTINIL DIOLAMINE
     Dosage: 4 MG, BID
  11. ATORVASTATIN [Concomitant]
     Active Substance: ATORVASTATIN
  12. WARFARIN [Concomitant]
     Active Substance: WARFARIN
  13. POTASSIUM CHLORIDE. [Concomitant]
     Active Substance: POTASSIUM CHLORIDE
  14. PROAIR HFA [Concomitant]
     Active Substance: ALBUTEROL SULFATE
  15. ADCIRCA [Concomitant]
     Active Substance: TADALAFIL

REACTIONS (4)
  - Dyspnoea [Unknown]
  - Diarrhoea [Not Recovered/Not Resolved]
  - Myocardial infarction [Unknown]
  - Therapy non-responder [Unknown]

NARRATIVE: CASE EVENT DATE: 20160415
